FAERS Safety Report 8287734-6 (Version None)
Quarter: 2012Q2

REPORT INFORMATION
  Report Type: 
  Country: None (occurrence: None)
  Receive Date: 20120416
  Receipt Date: 20120406
  Transmission Date: 20120825
  Serious: Yes (Hospitalization)
  Sender: FDA-Public Use
  Company Number: US-BAYER-2011-063738

PATIENT
  Age: 39 Year
  Sex: Female
  Weight: 79 kg

DRUGS (4)
  1. NEXIUM [Concomitant]
     Indication: ABDOMINAL DISCOMFORT
     Dosage: UNK
     Dates: start: 20080101
  2. YASMIN [Suspect]
     Indication: MENSTRUATION IRREGULAR
     Dosage: UNK
     Dates: start: 20050201, end: 20080101
  3. ZOLOFT [Concomitant]
     Indication: DEPRESSION
     Dosage: UNK
     Dates: start: 20050201
  4. YAZ [Suspect]
     Indication: MENSTRUATION IRREGULAR

REACTIONS (12)
  - EMOTIONAL DISTRESS [None]
  - MENTAL DISORDER [None]
  - DIARRHOEA [None]
  - CHOLECYSTECTOMY [None]
  - ANXIETY [None]
  - SCAR [None]
  - DYSPEPSIA [None]
  - BILIARY DYSKINESIA [None]
  - FLATULENCE [None]
  - ABDOMINAL DISTENSION [None]
  - CONSTIPATION [None]
  - DEPRESSION [None]
